FAERS Safety Report 9451633 (Version 2)
Quarter: 2013Q4

REPORT INFORMATION
  Report Type: Spontaneous
  Country: CH (occurrence: CH)
  Receive Date: 20130811
  Receipt Date: 20131108
  Transmission Date: 20140711
  Serious: Yes (Death)
  Sender: FDA-Public Use
  Company Number: CH-CUBIST PHARMACEUTICALS, INC.-2013CBST000568

PATIENT
  Sex: 0

DRUGS (9)
  1. CUBICIN [Suspect]
     Indication: ENDOCARDITIS
     Dosage: 8 MG/KG, IV 30 MIN INFUSION
     Route: 042
     Dates: start: 20111008, end: 20111019
  2. CUBICIN [Suspect]
     Dosage: 700 MG, QD (30 MIN INFUSION)
     Route: 042
     Dates: start: 20111008, end: 20111019
  3. RIFAMPICIN [Suspect]
     Indication: ARTHRITIS INFECTIVE
     Dosage: 600 MG, QD
     Route: 042
  4. ENOXAPARIN [Concomitant]
     Indication: PROPHYLAXIS
     Dosage: 40 MG, QD
     Route: 058
  5. MORPHINE [Concomitant]
     Indication: PAIN
     Dosage: 5 MG, Q4H
     Route: 042
  6. NITROGLYCERINE [Concomitant]
     Indication: ANGINA PECTORIS
     Dosage: 10 MG, QD
     Route: 062
  7. IPRATROPIUM [Concomitant]
     Indication: CHRONIC OBSTRUCTIVE PULMONARY DISEASE
     Dosage: UNK, TID, INHALATION
     Route: 055
  8. SALBUTAMOL [Concomitant]
     Indication: CHRONIC OBSTRUCTIVE PULMONARY DISEASE
     Dosage: UNK, TID, INHALATION
     Route: 055
  9. PARACETAMOL [Concomitant]
     Indication: PAIN
     Dosage: 1 G, TID
     Route: 042

REACTIONS (1)
  - Endocarditis [Fatal]
